FAERS Safety Report 15317111 (Version 1)
Quarter: 2018Q3

REPORT INFORMATION
  Report Type: Spontaneous
  Country: US (occurrence: US)
  Receive Date: 20180816
  Receipt Date: 20180816
  Transmission Date: 20181010
  Serious: Yes (Life-Threatening, Hospitalization, Other)
  Sender: FDA-Public Use
  Company Number: None

PATIENT
  Age: 55 Year
  Sex: Female
  Weight: 105.75 kg

DRUGS (6)
  1. DULOXETINE DR 30 MG CAPS, MFG TEVA. [Suspect]
     Active Substance: DULOXETINE
     Indication: BLOOD PRESSURE MEASUREMENT
     Dosage: ?          QUANTITY:1 TABLET(S);?
     Route: 048
     Dates: start: 20180504, end: 20180507
  2. LOSARTAN 25 MG TABS [Suspect]
     Active Substance: LOSARTAN
     Indication: PAIN
  3. VITAMIN B12 [Concomitant]
     Active Substance: CYANOCOBALAMIN
  4. VITAMIN D [Concomitant]
     Active Substance: CHOLECALCIFEROL
  5. HCT [Concomitant]
     Active Substance: HYDROCHLOROTHIAZIDE
  6. HYDROCHLORAZIDE [Concomitant]

REACTIONS (2)
  - Mouth haemorrhage [None]
  - Angina bullosa haemorrhagica [None]

NARRATIVE: CASE EVENT DATE: 20180505
